FAERS Safety Report 4565138-7 (Version None)
Quarter: 2005Q1

REPORT INFORMATION
  Report Type: 
  Country: None (occurrence: None)
  Receive Date: 20050131
  Receipt Date: 20050118
  Transmission Date: 20050727
  Serious: Yes (Hospitalization)
  Sender: FDA-Public Use
  Company Number: 200510227FR

PATIENT
  Age: 91 Year
  Sex: Female

DRUGS (6)
  1. FUROSEMIDE [Suspect]
     Route: 048
  2. LANSOPRAZOLE [Suspect]
     Route: 048
     Dates: end: 20041122
  3. TIAPRIDE [Suspect]
     Route: 048
     Dates: end: 20041122
  4. STABLON [Concomitant]
     Route: 048
     Dates: end: 20041122
  5. PLAVIX [Suspect]
     Route: 048
     Dates: end: 20041122
  6. TRIVASTAL [Suspect]
     Route: 048
     Dates: end: 20041122

REACTIONS (3)
  - CONFUSIONAL STATE [None]
  - DISORIENTATION [None]
  - DIZZINESS [None]
